FAERS Safety Report 8240010-X (Version None)
Quarter: 2012Q1

REPORT INFORMATION
  Report Type: 
  Country: None (occurrence: None)
  Receive Date: 20120328
  Receipt Date: 20120313
  Transmission Date: 20120608
  Serious: Yes (Death, Hospitalization)
  Sender: FDA-Public Use
  Company Number: ES-CELGENEUS-144-50794-12031497

PATIENT

DRUGS (4)
  1. EDEMOX [Concomitant]
     Indication: GLAUCOMA
     Dosage: 2 DROPS
     Route: 047
  2. VIDAZA [Suspect]
     Route: 065
     Dates: start: 20091130, end: 20091204
  3. ALLOPURINOL [Concomitant]
     Dosage: 300 MILLIGRAM
     Route: 065
     Dates: start: 20091130
  4. ONDANSETRON [Concomitant]
     Dosage: 24 MILLIGRAM
     Route: 065
     Dates: start: 20091130

REACTIONS (1)
  - RESPIRATORY TRACT INFECTION [None]
